FAERS Safety Report 8155824-4 (Version None)
Quarter: 2012Q1

REPORT INFORMATION
  Report Type: 
  Country: None (occurrence: None)
  Receive Date: 20120222
  Receipt Date: 20120207
  Transmission Date: 20120608
  Serious: Yes (Other)
  Sender: FDA-Public Use
  Company Number: US-RANBAXY-2010US-33453

PATIENT
  Age: 39 Year
  Sex: Female

DRUGS (7)
  1. AMANTADINE HCL [Suspect]
     Indication: FATIGUE
     Dosage: 100MG/DAY
     Route: 065
  2. BUPROPION HCL [Concomitant]
     Indication: PRODUCT USED FOR UNKNOWN INDICATION
     Dosage: 100MG/DAY
     Route: 065
  3. AMANTADINE HCL [Suspect]
     Indication: TREMOR
     Dosage: 2100 MG BID
     Route: 065
  4. CLONAZEPAM [Concomitant]
     Indication: PRODUCT USED FOR UNKNOWN INDICATION
     Dosage: 2 MG PER DAY
     Route: 065
  5. FLUOXETINE [Suspect]
     Indication: PRODUCT USED FOR UNKNOWN INDICATION
     Dosage: 20 MG PER DAY
     Route: 065
  6. TOPIRAMATE [Suspect]
     Indication: PRODUCT USED FOR UNKNOWN INDICATION
     Dosage: 50 MG, BID
     Route: 065
  7. CEPAXONE [Concomitant]
     Indication: PRODUCT USED FOR UNKNOWN INDICATION
     Dosage: 20MG/DAY
     Route: 058

REACTIONS (2)
  - CORNEAL OEDEMA [None]
  - DRUG INTERACTION [None]
